FAERS Safety Report 5169473-3 (Version None)
Quarter: 2006Q4

REPORT INFORMATION
  Report Type: 
  Country: None (occurrence: None)
  Receive Date: 20061211
  Receipt Date: 20061204
  Transmission Date: 20070319
  Serious: Yes (Other)
  Sender: FDA-Public Use
  Company Number: US-JNJFOC-20061201087

PATIENT
  Sex: Female

DRUGS (8)
  1. REMICADE [Suspect]
     Route: 042
  2. REMICADE [Suspect]
     Indication: RHEUMATOID ARTHRITIS
     Route: 042
  3. SYNTHROID [Concomitant]
  4. MULTIVIT [Concomitant]
  5. CALCIUM [Concomitant]
  6. NABUMETONE [Concomitant]
  7. ESTROGEN SUPPLEMENT [Concomitant]
  8. TYLENOL [Concomitant]

REACTIONS (2)
  - HAEMORRHOIDS [None]
  - IMPAIRED HEALING [None]
